FAERS Safety Report 5141245-5 (Version None)
Quarter: 2006Q4

REPORT INFORMATION
  Report Type: 
  Country: None (occurrence: None)
  Receive Date: 20061101
  Receipt Date: 20061019
  Transmission Date: 20070319
  Serious: Yes (Other)
  Sender: FDA-Public Use
  Company Number: PHBS2006BR16391

PATIENT
  Sex: Female

DRUGS (2)
  1. XELODA [Concomitant]
     Route: 065
  2. ZOMETA [Suspect]
     Indication: BREAST CANCER METASTATIC
     Route: 065

REACTIONS (2)
  - DIZZINESS [None]
  - SYNCOPE [None]
